FAERS Safety Report 8988341 (Version 1)
Quarter: 2012Q4

REPORT INFORMATION
  Report Type: Spontaneous
  Country: US (occurrence: None)
  Receive Date: 20121220
  Receipt Date: 20121220
  Transmission Date: 20130627
  Serious: Yes (Disabling)
  Sender: FDA-Public Use
  Company Number: None

PATIENT
  Age: 60 Year
  Sex: Female
  Weight: 70.31 kg

DRUGS (1)
  1. PLAQUENIL [Suspect]
     Indication: LUPUS-LIKE SYNDROME
     Route: 048
     Dates: start: 20040115, end: 20120601

REACTIONS (1)
  - Retinal injury [None]
